FAERS Safety Report 5164402-0 (Version None)
Quarter: 2006Q4

REPORT INFORMATION
  Report Type: 
  Country: None (occurrence: None)
  Receive Date: 20061205
  Receipt Date: 20061101
  Transmission Date: 20070319
  Serious: Yes (Death, Hospitalization, Other)
  Sender: FDA-Public Use
  Company Number: PHFR2006GB03237

PATIENT
  Age: 83 Year
  Sex: Female

DRUGS (7)
  1. CLOZARIL [Suspect]
     Indication: SCHIZOPHRENIA
     Dosage: 150 MG, QD
     Route: 048
     Dates: start: 19920116
  2. LOFEPRAMINE [Concomitant]
     Dosage: 140MG / DAY
     Route: 048
  3. CO-AMILOFRUSE [Concomitant]
     Dosage: UNK, QD
     Route: 048
     Dates: end: 20061014
  4. CEFUROXIME [Concomitant]
     Dosage: 2.25G / DAY
     Route: 048
     Dates: start: 20061014
  5. METRONIDAZOLE [Concomitant]
     Dosage: 1.5G / DAY
     Route: 048
     Dates: start: 20061014
  6. OMEPRAZOLE [Concomitant]
     Dosage: 40MG / DAY
     Route: 048
     Dates: start: 20061014
  7. SALBUTAMOL [Concomitant]
     Dates: start: 20061014

REACTIONS (6)
  - ABDOMINAL DISCOMFORT [None]
  - CONSTIPATION [None]
  - HAEMATEMESIS [None]
  - INJURY ASPHYXIATION [None]
  - INTESTINAL OBSTRUCTION [None]
  - VOMITING [None]
